FAERS Safety Report 6657506-4 (Version None)
Quarter: 2010Q1

REPORT INFORMATION
  Report Type: 
  Country: None (occurrence: None)
  Receive Date: 20100330
  Receipt Date: 20100330
  Transmission Date: 20100710
  Serious: Yes (Hospitalization)
  Sender: FDA-Public Use
  Company Number: PHHO2007DE10281

PATIENT
  Sex: Female
  Weight: 39.8 kg

DRUGS (5)
  1. ACLASTA/ZOLEDRONATE T29581+A+SOLINJ [Suspect]
     Indication: OSTEOPOROSIS POSTMENOPAUSAL
     Dosage: 5 MG ONCE A YEAR
     Route: 042
     Dates: start: 20060224
  2. CALCIUM [Concomitant]
     Indication: OSTEOPOROSIS POSTMENOPAUSAL
  3. VITAMIN D [Concomitant]
     Indication: OSTEOPOROSIS POSTMENOPAUSAL
  4. HYDROCHLOROTHIAZIDE [Concomitant]
     Indication: HYPERTENSION
     Dosage: 12.5 MG
     Route: 048
     Dates: start: 20061123
  5. EUNERPAN [Concomitant]
     Indication: SENILE DEMENTIA
     Dosage: 5 ML
     Route: 048
     Dates: start: 20061123

REACTIONS (3)
  - DEHYDRATION [None]
  - SOMNOLENCE [None]
  - URINARY TRACT INFECTION [None]
